FAERS Safety Report 9562784 (Version 3)
Quarter: 2013Q4

REPORT INFORMATION
  Report Type: Spontaneous
  Country: IT (occurrence: IT)
  Receive Date: 20130927
  Receipt Date: 20131126
  Transmission Date: 20140711
  Serious: Yes (Hospitalization)
  Sender: FDA-Public Use
  Company Number: IT-BRISTOL-MYERS SQUIBB COMPANY-19388750

PATIENT
  Age: 78 Year
  Sex: Male

DRUGS (7)
  1. COUMADIN [Suspect]
     Indication: ATRIAL FIBRILLATION
     Route: 048
     Dates: start: 20080701, end: 20130906
  2. BRUFEN [Interacting]
     Indication: ARTHRALGIA
     Route: 048
     Dates: start: 20090101, end: 20130906
  3. BISOPROLOL HEMIFUMARATE [Concomitant]
     Route: 048
  4. VALSARTAN [Concomitant]
     Route: 048
  5. OMEPRAZOLE [Concomitant]
     Route: 048
  6. DELTACORTENE [Concomitant]
     Indication: RHEUMATOID ARTHRITIS
     Dosage: 12.25MG
     Route: 048
  7. PLAQUENIL [Concomitant]
     Indication: RHEUMATOID ARTHRITIS
     Route: 048

REACTIONS (5)
  - Duodenal ulcer [Recovering/Resolving]
  - Anaemia [Recovering/Resolving]
  - Hypocoagulable state [Recovering/Resolving]
  - Melaena [Recovering/Resolving]
  - Drug interaction [Recovering/Resolving]
